FAERS Safety Report 4326627-3 (Version None)
Quarter: 2004Q1

REPORT INFORMATION
  Report Type: 
  Country: None (occurrence: None)
  Receive Date: 20040325
  Receipt Date: 20030819
  Transmission Date: 20041129
  Serious: No
  Sender: FDA-Public Use
  Company Number: US045329

PATIENT
  Age: 55 Year
  Sex: Male

DRUGS (1)
  1. NEULASTA [Suspect]
     Indication: CHEMOTHERAPY
     Dosage: 6 MG, AFTER CHEMO, SC
     Route: 058
     Dates: start: 20030813, end: 20030813

REACTIONS (7)
  - BLOOD PRESSURE DECREASED [None]
  - CHILLS [None]
  - DIZZINESS [None]
  - DYSPNOEA [None]
  - PLATELET COUNT DECREASED [None]
  - PYREXIA [None]
  - WHITE BLOOD CELL COUNT INCREASED [None]
